FAERS Safety Report 6191015-4 (Version None)
Quarter: 2009Q2

REPORT INFORMATION
  Report Type: 
  Country: None (occurrence: None)
  Receive Date: 20090513
  Receipt Date: 20061217
  Transmission Date: 20091009
  Serious: Yes (Hospitalization)
  Sender: FDA-Public Use
  Company Number: 2006US002025

PATIENT
  Age: 86 Year
  Sex: Male
  Weight: 99.8 kg

DRUGS (7)
  1. AMEVIVE [Suspect]
     Indication: PSORIASIS
     Dosage: 15 MG, WEEKLY, INTRAMUSCULAR
     Route: 030
     Dates: start: 20040116, end: 20041004
  2. ACTONEL [Concomitant]
  3. LASIX [Concomitant]
  4. FLOMAX [Concomitant]
  5. POTASSIUM CHLORIDE [Concomitant]
  6. COUMADIN [Concomitant]
  7. SORIATANE [Concomitant]

REACTIONS (5)
  - COLON ADENOMA [None]
  - CONFUSIONAL STATE [None]
  - HAEMATOCHEZIA [None]
  - POST PROCEDURAL COMPLICATION [None]
  - URINARY RETENTION [None]
